FAERS Safety Report 14332034 (Version 1)
Quarter: 2017Q4

REPORT INFORMATION
  Report Type: Spontaneous
  Country: US (occurrence: US)
  Receive Date: 20171228
  Receipt Date: 20171228
  Transmission Date: 20180321
  Serious: Yes (Other)
  Sender: FDA-Public Use
  Company Number: US-GLAXOSMITHKLINE-US2017199140

PATIENT
  Sex: Female

DRUGS (1)
  1. PARODONTAX [Suspect]
     Active Substance: STANNOUS FLUORIDE
     Indication: PRODUCT USED FOR UNKNOWN INDICATION
     Dosage: UNK
     Dates: start: 20171210

REACTIONS (6)
  - Tongue blistering [Unknown]
  - Chemical burn of gastrointestinal tract [Unknown]
  - Lip pain [Unknown]
  - Oral mucosal blistering [Unknown]
  - Gingival bleeding [Unknown]
  - Oral pain [Unknown]
